FAERS Safety Report 5457468-1 (Version None)
Quarter: 2007Q3

REPORT INFORMATION
  Report Type: 
  Country: None (occurrence: None)
  Receive Date: 20070918
  Receipt Date: 20070307
  Transmission Date: 20080115
  Serious: No
  Sender: FDA-Public Use
  Company Number: US-ASTRAZENECA-2007UW04289

PATIENT
  Age: 17 Year
  Sex: Female
  Weight: 65.3 kg

DRUGS (4)
  1. SEROQUEL [Suspect]
     Indication: PSYCHOTIC DISORDER
     Route: 048
     Dates: start: 20070105, end: 20070306
  2. RISPERDAL [Concomitant]
  3. ZOLOFT [Concomitant]
  4. BENADRYL [Concomitant]

REACTIONS (3)
  - DEMENTIA [None]
  - INSOMNIA [None]
  - RESTLESSNESS [None]
